FAERS Safety Report 8142933-9 (Version None)
Quarter: 2012Q1

REPORT INFORMATION
  Report Type: 
  Country: None (occurrence: None)
  Receive Date: 20120217
  Receipt Date: 20120207
  Transmission Date: 20120608
  Serious: No
  Sender: FDA-Public Use
  Company Number: US-BIOGENIDEC-2011BI005557

PATIENT
  Sex: Female

DRUGS (1)
  1. TYSABRI [Suspect]
     Indication: MULTIPLE SCLEROSIS
     Route: 042
     Dates: start: 20080715

REACTIONS (12)
  - MUSCLE SPASMS [None]
  - COGNITIVE DISORDER [None]
  - PAIN [None]
  - POLLAKIURIA [None]
  - MICTURITION URGENCY [None]
  - ARTHRALGIA [None]
  - FATIGUE [None]
  - CONSTIPATION [None]
  - SPEECH DISORDER [None]
  - MYALGIA [None]
  - ASTHENIA [None]
  - BURNOUT SYNDROME [None]
